FAERS Safety Report 9274794 (Version 2)
Quarter: 2013Q2

REPORT INFORMATION
  Report Type: Spontaneous
  Country: JP (occurrence: None)
  Receive Date: 20130429
  Receipt Date: 20130513
  Transmission Date: 20140414
  Serious: Yes (Hospitalization)
  Sender: FDA-Public Use
  Company Number: TCI2013A02183

PATIENT
  Age: 81 Year
  Sex: Male

DRUGS (8)
  1. NESINA [Suspect]
     Indication: TYPE 2 DIABETES MELLITUS
     Route: 048
     Dates: start: 20130403
  2. BASEN [Concomitant]
  3. NORVASC (AMLODIPINE BESILATE) [Concomitant]
  4. RENIVACE [Concomitant]
  5. EPADEL [Concomitant]
  6. CARDENALIN [Concomitant]
  7. DEPAS [Concomitant]
  8. VESICARE [Concomitant]

REACTIONS (3)
  - Subdural haematoma [None]
  - Hypotension [None]
  - Fall [None]
